FAERS Safety Report 7716278-2 (Version None)
Quarter: 2011Q3

REPORT INFORMATION
  Report Type: 
  Country: None (occurrence: None)
  Receive Date: 20110829
  Receipt Date: 20110819
  Transmission Date: 20111222
  Serious: Yes (Other)
  Sender: FDA-Public Use
  Company Number: CA-JNJFOC-20110809865

PATIENT
  Sex: Male

DRUGS (4)
  1. REMICADE [Suspect]
     Indication: CROHN'S DISEASE
     Route: 042
     Dates: start: 20060223
  2. IMURAN [Concomitant]
  3. MULTIPLE VITAMINS [Concomitant]
  4. SULFASALAZINE [Concomitant]

REACTIONS (1)
  - INGUINAL HERNIA [None]
